FAERS Safety Report 9369602 (Version 1)
Quarter: 2013Q2

REPORT INFORMATION
  Report Type: Spontaneous
  Country: US (occurrence: US)
  Receive Date: 20130626
  Receipt Date: 20130626
  Transmission Date: 20140414
  Serious: No
  Sender: FDA-Public Use
  Company Number: US-MYLANLABS-2012S1025374

PATIENT
  Age: 68 Year
  Sex: Male
  Weight: 81.65 kg

DRUGS (3)
  1. PERFOROMIST (FORMOTEROL FUMARATE) INHALATION SOLUTION [Suspect]
     Indication: CHRONIC OBSTRUCTIVE PULMONARY DISEASE
     Route: 055
     Dates: start: 20120730
  2. PREDNISONE [Concomitant]
     Route: 048
  3. ALBUTEROL [Concomitant]
     Route: 055

REACTIONS (2)
  - Drug ineffective [Not Recovered/Not Resolved]
  - Chronic obstructive pulmonary disease [Not Recovered/Not Resolved]
